FAERS Safety Report 6032523-6 (Version None)
Quarter: 2009Q1

REPORT INFORMATION
  Report Type: 
  Country: None (occurrence: None)
  Receive Date: 20090109
  Receipt Date: 20081107
  Transmission Date: 20090719
  Serious: No
  Sender: FDA-Public Use
  Company Number: A0755425A

PATIENT
  Age: 59 Year
  Sex: Female

DRUGS (7)
  1. TYKERB [Suspect]
     Indication: BREAST CANCER
     Dosage: 5TAB PER DAY
     Route: 048
     Dates: start: 20081031
  2. OXYCONTIN [Suspect]
     Dosage: 20MG TWICE PER DAY
     Route: 048
     Dates: start: 20081103
  3. HYDROCODONE [Suspect]
     Indication: BACK PAIN
     Route: 048
  4. ZOCOR [Concomitant]
  5. ATIVAN [Concomitant]
  6. SUPPLEMENT [Concomitant]
  7. NAVELBINE [Concomitant]

REACTIONS (6)
  - BACK PAIN [None]
  - CHILLS [None]
  - NASAL DISCOMFORT [None]
  - PRURITUS [None]
  - PRURITUS GENERALISED [None]
  - PYREXIA [None]
